FAERS Safety Report 15371477 (Version 3)
Quarter: 2018Q4

REPORT INFORMATION
  Report Type: Spontaneous
  Country: UA (occurrence: UA)
  Receive Date: 20180911
  Receipt Date: 20181024
  Transmission Date: 20190204
  Serious: Yes (Hospitalization, Other)
  Sender: FDA-Public Use
  Company Number: UA-ASTRAZENECA-2018SF12400

PATIENT
  Age: 33 Year
  Sex: Male
  Weight: 68 kg

DRUGS (3)
  1. SYMBICORT [Suspect]
     Active Substance: BUDESONIDE\FORMOTEROL FUMARATE DIHYDRATE
     Indication: ASTHMA
     Dosage: 160 / 4.5 BY 1 INHALATION TWICE A DAY
     Route: 055
     Dates: start: 20100901, end: 20180901
  2. SYMBICORT [Suspect]
     Active Substance: BUDESONIDE\FORMOTEROL FUMARATE DIHYDRATE
     Indication: ASTHMA
     Dosage: 160 / 4.5, TWO BREATHES TWO TIMES A DAY
     Route: 055
     Dates: start: 20180907
  3. WILPRAFEN [Concomitant]

REACTIONS (6)
  - Asthma [Unknown]
  - Drug ineffective [Recovered/Resolved]
  - Pneumonia [Unknown]
  - Lymphadenopathy mediastinal [Unknown]
  - Aneurysm [Unknown]
  - Product packaging issue [Unknown]

NARRATIVE: CASE EVENT DATE: 20180801
